FAERS Safety Report 8598972-7 (Version None)
Quarter: 2012Q3

REPORT INFORMATION
  Report Type: 
  Country: None (occurrence: None)
  Receive Date: 20120816
  Receipt Date: 20120810
  Transmission Date: 20120928
  Serious: Yes (Other)
  Sender: FDA-Public Use
  Company Number: US-BAYER-2012-075616

PATIENT
  Age: 37 Year
  Sex: Female

DRUGS (1)
  1. MIRENA [Suspect]
     Indication: CONTRACEPTION
     Dosage: 20 MCG/24HR, CONT
     Route: 015
     Dates: start: 20111128, end: 20120706

REACTIONS (9)
  - BACK PAIN [None]
  - SLEEP DISORDER [None]
  - PAIN IN EXTREMITY [None]
  - VAGINAL HAEMORRHAGE [None]
  - HYPOREFLEXIA [None]
  - ACNE [None]
  - BURSITIS [None]
  - GAIT DISTURBANCE [None]
  - EXERCISE TOLERANCE DECREASED [None]
